FAERS Safety Report 12712835 (Version 3)
Quarter: 2025Q2

REPORT INFORMATION
  Report Type: Report from Study
  Country: US (occurrence: US)
  Receive Date: 20160902
  Receipt Date: 20250415
  Transmission Date: 20250717
  Serious: Yes (Hospitalization, Other)
  Sender: TAKEDA
  Company Number: US-TAKEDA-2016TUS015602

PATIENT
  Sex: Female
  Weight: 56.2 kg

DRUGS (4)
  1. VEDOLIZUMAB [Suspect]
     Active Substance: VEDOLIZUMAB
     Indication: Colitis ulcerative
  2. VEDOLIZUMAB [Suspect]
     Active Substance: VEDOLIZUMAB
     Indication: Colitis ulcerative
  3. VEDOLIZUMAB [Suspect]
     Active Substance: VEDOLIZUMAB
  4. PREDNISONE [Concomitant]
     Active Substance: PREDNISONE
     Indication: Colitis ulcerative

REACTIONS (6)
  - Colitis ulcerative [Recovering/Resolving]
  - Pneumonia viral [Recovering/Resolving]
  - Rectal haemorrhage [Recovering/Resolving]
  - Illness [Recovering/Resolving]
  - Therapeutic reaction time decreased [Unknown]
  - Headache [Recovering/Resolving]
